FAERS Safety Report 23774455 (Version 1)
Quarter: 2024Q2

REPORT INFORMATION
  Report Type: Spontaneous
  Country: US (occurrence: US)
  Receive Date: 20240423
  Receipt Date: 20240423
  Transmission Date: 20240716
  Serious: No
  Sender: FDA-Public Use
  Company Number: US-RADIUS HEALTH INC.-2023US006887

PATIENT
  Age: 72 Year
  Sex: Male

DRUGS (1)
  1. BINOSTO [Suspect]
     Active Substance: ALENDRONATE SODIUM
     Indication: Product used for unknown indication

REACTIONS (2)
  - Oral lichen planus [Unknown]
  - Osteoporosis [Unknown]
